FAERS Safety Report 17692674 (Version 6)
Quarter: 2022Q2

REPORT INFORMATION
  Report Type: Report from Study
  Country: US (occurrence: US)
  Receive Date: 20200422
  Receipt Date: 20220405
  Transmission Date: 20220721
  Serious: Yes (Hospitalization, Other)
  Sender: FDA-Public Use
  Company Number: US-NOVARTISTESTPH-NVSC2020US107992

PATIENT
  Sex: Female

DRUGS (3)
  1. PIQRAY [Suspect]
     Active Substance: ALPELISIB
     Indication: Product used for unknown indication
     Dosage: UNK
     Route: 048
  2. PIQRAY [Suspect]
     Active Substance: ALPELISIB
     Route: 048
  3. KISQALI [Suspect]
     Active Substance: RIBOCICLIB
     Indication: Product used for unknown indication
     Dosage: UNK
     Route: 048
     Dates: start: 20211219

REACTIONS (15)
  - Illness [Unknown]
  - Diabetes mellitus [Unknown]
  - Urticaria [Unknown]
  - Renal disorder [Unknown]
  - Lethargy [Unknown]
  - Gait disturbance [Unknown]
  - Weight increased [Unknown]
  - Mental disorder [Unknown]
  - Diarrhoea [Unknown]
  - Oedema peripheral [Unknown]
  - Blood glucose increased [Unknown]
  - Decreased appetite [Unknown]
  - Fatigue [Unknown]
  - Malaise [Unknown]
  - Pain [Unknown]
